FAERS Safety Report 8834856 (Version 1)
Quarter: 2012Q4

REPORT INFORMATION
  Report Type: Spontaneous
  Country: MY (occurrence: None)
  Receive Date: 20121009
  Receipt Date: 20121009
  Transmission Date: 20130627
  Serious: Yes (Other)
  Sender: FDA-Public Use
  Company Number: B0835661A

PATIENT
  Age: 59 Year
  Sex: Female

DRUGS (1)
  1. ITRACONAZOLE [Suspect]
     Indication: CUTANEOUS SPOROTRICHOSIS
     Route: 048

REACTIONS (2)
  - Atrial fibrillation [None]
  - Cardiac failure [None]
